FAERS Safety Report 5040641-4 (Version None)
Quarter: 2006Q2

REPORT INFORMATION
  Report Type: 
  Country: None (occurrence: None)
  Receive Date: 20060630
  Receipt Date: 20060628
  Transmission Date: 20061013
  Serious: Yes (Hospitalization)
  Sender: FDA-Public Use
  Company Number: FR-MERCK-0606FRA00076

PATIENT
  Age: 79 Year
  Sex: Female

DRUGS (7)
  1. ZOCOR [Suspect]
     Indication: DYSLIPIDAEMIA
     Route: 048
  2. LEVOTHYROXINE SODIUM [Suspect]
     Indication: HYPOTHYROIDISM
     Route: 048
     Dates: start: 19890615, end: 20060517
  3. LEVOTHYROXINE SODIUM [Suspect]
     Route: 048
     Dates: start: 20060518
  4. CYANOCOBALAMIN [Concomitant]
     Route: 048
     Dates: start: 20010615
  5. ALTHIAZIDE AND SPIRONOLACTONE [Suspect]
     Indication: HYPERTENSION
     Route: 048
     Dates: end: 20060516
  6. CLONAZEPAM [Concomitant]
     Route: 048
     Dates: start: 19990615
  7. TIAPRIDE [Suspect]
     Route: 048
     Dates: end: 20060516

REACTIONS (2)
  - HYPOKALAEMIA [None]
  - HYPONATRAEMIA [None]
